FAERS Safety Report 20182911 (Version 1)
Quarter: 2021Q4

REPORT INFORMATION
  Report Type: Spontaneous
  Country: US (occurrence: US)
  Receive Date: 20211214
  Receipt Date: 20211214
  Transmission Date: 20220303
  Serious: No
  Sender: FDA-Public Use
  Company Number: US-INCYTE CORPORATION-2021IN011431

PATIENT

DRUGS (1)
  1. JAKAFI [Suspect]
     Active Substance: RUXOLITINIB
     Indication: Polycythaemia vera
     Dosage: 10 MILLIGRAM DAILY
     Route: 048
     Dates: start: 20210218

REACTIONS (3)
  - Emotional disorder [Unknown]
  - Product availability issue [Unknown]
  - Urinary tract infection [Unknown]
